FAERS Safety Report 18916523 (Version 1)
Quarter: 2021Q1

REPORT INFORMATION
  Report Type: Spontaneous
  Country: US (occurrence: US)
  Receive Date: 20210219
  Receipt Date: 20210219
  Transmission Date: 20210420
  Serious: No
  Sender: FDA-Public Use
  Company Number: None

PATIENT
  Age: 38 Year
  Sex: Female
  Weight: 52.65 kg

DRUGS (6)
  1. CHANTIX [Suspect]
     Active Substance: VARENICLINE TARTRATE
     Indication: NICOTINE DEPENDENCE
     Dosage: ?          QUANTITY:1 TABLET(S);?
     Route: 048
  2. EPIPEN [Concomitant]
     Active Substance: EPINEPHRINE
  3. ALBUTEROL INHALER [Concomitant]
     Active Substance: ALBUTEROL
  4. BENTYL [Concomitant]
     Active Substance: DICYCLOMINE HYDROCHLORIDE
  5. COLACE [Concomitant]
     Active Substance: DOCUSATE SODIUM
  6. VITAMIN D [Concomitant]
     Active Substance: VITAMIN D NOS

REACTIONS (5)
  - Insomnia [None]
  - Aggression [None]
  - Fatigue [None]
  - Abdominal discomfort [None]
  - Agitation [None]

NARRATIVE: CASE EVENT DATE: 20210218
